FAERS Safety Report 9249667 (Version 2)
Quarter: 2013Q3

REPORT INFORMATION
  Report Type: Spontaneous
  Country: US (occurrence: US)
  Receive Date: 20130423
  Receipt Date: 20130717
  Transmission Date: 20140515
  Serious: Yes (Other)
  Sender: FDA-Public Use
  Company Number: US-BRISTOL-MYERS SQUIBB COMPANY-18595496

PATIENT
  Age: 71 Year
  Sex: Male
  Weight: 63.49 kg

DRUGS (1)
  1. YERVOY [Suspect]
     Indication: MALIGNANT MELANOMA
     Dosage: NO OF TREATMENTS 2
     Dates: start: 20130219

REACTIONS (1)
  - Malignant neoplasm progression [Unknown]
